FAERS Safety Report 22389967 (Version 1)
Quarter: 2023Q2

REPORT INFORMATION
  Report Type: Spontaneous
  Country: US (occurrence: None)
  Receive Date: 20230531
  Receipt Date: 20230531
  Transmission Date: 20230722
  Serious: No
  Sender: FDA-Public Use
  Company Number: None

PATIENT
  Sex: Male

DRUGS (10)
  1. ABIRATERONE ACETATE [Suspect]
     Active Substance: ABIRATERONE ACETATE
     Indication: Prostate cancer
     Dosage: OTHER QUANTITY : 4T;?FREQUENCY : DAILY;?
     Route: 048
  2. ONDANSETRON [Concomitant]
  3. BUSPIRONE [Concomitant]
  4. PREDNISONE [Concomitant]
     Active Substance: PREDNISONE
  5. GABAPENTIN [Concomitant]
     Active Substance: GABAPENTIN
  6. TAMSULOSIN [Concomitant]
  7. PANTOPRAZOLE [Concomitant]
  8. METOPROLOL [Concomitant]
  9. OXYBUTYNIN [Concomitant]
     Active Substance: OXYBUTYNIN
  10. ESCITALOPRAM [Concomitant]

REACTIONS (1)
  - Malignant neoplasm progression [None]
